FAERS Safety Report 4300028-6 (Version None)
Quarter: 2004Q1

REPORT INFORMATION
  Report Type: 
  Country: None (occurrence: None)
  Receive Date: 20040218
  Receipt Date: 20040130
  Transmission Date: 20041129
  Serious: Yes (Hospitalization)
  Sender: FDA-Public Use
  Company Number: FR_040203516

PATIENT
  Age: 69 Year
  Sex: Male

DRUGS (2)
  1. HUMALOG [Suspect]
     Indication: HYPERGLYCAEMIA
     Dates: start: 20040129, end: 20040129
  2. HYZAAR [Concomitant]

REACTIONS (1)
  - FACE OEDEMA [None]
